FAERS Safety Report 4902499-0 (Version None)
Quarter: 2006Q1

REPORT INFORMATION
  Report Type: 
  Country: None (occurrence: None)
  Receive Date: 20060207
  Receipt Date: 20041118
  Transmission Date: 20060701
  Serious: Yes (Disabling)
  Sender: FDA-Public Use
  Company Number: PHEH2004US12514

PATIENT
  Age: 43 Year
  Sex: Male
  Weight: 146.49 kg

DRUGS (2)
  1. LAMISIL [Suspect]
     Indication: NAIL TINEA
     Dosage: 250 MG, QD
     Route: 048
     Dates: start: 20021201, end: 20030401
  2. ZANTAC [Concomitant]
     Indication: GASTROOESOPHAGEAL REFLUX DISEASE

REACTIONS (18)
  - AGEUSIA [None]
  - ANGER [None]
  - ANXIETY [None]
  - APHASIA [None]
  - ASTHENIA [None]
  - BLOOD BILIRUBIN INCREASED [None]
  - BREATH ODOUR [None]
  - BRUXISM [None]
  - CONFUSIONAL STATE [None]
  - DEPRESSION [None]
  - DISTURBANCE IN ATTENTION [None]
  - DYSGEUSIA [None]
  - HEADACHE [None]
  - IRRITABILITY [None]
  - MEMORY IMPAIRMENT [None]
  - NERVE INJURY [None]
  - POSTNASAL DRIP [None]
  - WEIGHT INCREASED [None]
